FAERS Safety Report 7898601-1 (Version None)
Quarter: 2011Q4

REPORT INFORMATION
  Report Type: 
  Country: None (occurrence: None)
  Receive Date: 20111107
  Receipt Date: 20111107
  Transmission Date: 20120403
  Serious: No
  Sender: FDA-Public Use
  Company Number: None

PATIENT
  Age: 66 Year
  Sex: Female
  Weight: 78.017 kg

DRUGS (1)
  1. LIPITOR [Suspect]
     Indication: BLOOD CHOLESTEROL INCREASED
     Dosage: 1/2 PILL
     Route: 048
     Dates: start: 20111020, end: 20111020

REACTIONS (6)
  - PRODUCT COATING ISSUE [None]
  - DYSGEUSIA [None]
  - PRODUCT SUBSTITUTION ISSUE [None]
  - WRONG TECHNIQUE IN DRUG USAGE PROCESS [None]
  - PRODUCT TASTE ABNORMAL [None]
  - PRODUCT COLOUR ISSUE [None]
